FAERS Safety Report 6509760-7 (Version None)
Quarter: 2009Q4

REPORT INFORMATION
  Report Type: 
  Country: None (occurrence: None)
  Receive Date: 20091222
  Receipt Date: 20091210
  Transmission Date: 20100525
  Serious: Yes (Hospitalization, Other)
  Sender: FDA-Public Use
  Company Number: CA-AMGEN-QUU379639

PATIENT
  Sex: Male

DRUGS (1)
  1. ENBREL [Suspect]
     Indication: POLYARTHRITIS
     Route: 058
     Dates: end: 20091208

REACTIONS (2)
  - CHRONIC OBSTRUCTIVE PULMONARY DISEASE [None]
  - PNEUMONIA [None]
